FAERS Safety Report 20335860 (Version 2)
Quarter: 2022Q1

REPORT INFORMATION
  Report Type: Spontaneous
  Country: AU (occurrence: AU)
  Receive Date: 20220114
  Receipt Date: 20220207
  Transmission Date: 20220423
  Serious: Yes (Other)
  Sender: FDA-Public Use
  Company Number: AU-009507513-2201AUS000551

PATIENT
  Age: 28 Year
  Sex: Male

DRUGS (2)
  1. POSACONAZOLE [Suspect]
     Active Substance: POSACONAZOLE
     Indication: Fungal endocarditis
     Dosage: 300 MILLIGRAM, QD
     Route: 048
  2. AMPHOTERICIN B [Suspect]
     Active Substance: AMPHOTERICIN B
     Indication: Fungal endocarditis
     Dosage: 3 MILLIGRAM/KILOGRAM, QD
     Route: 042

REACTIONS (1)
  - Drug ineffective [Unknown]
